FAERS Safety Report 17707263 (Version 1)
Quarter: 2020Q2

REPORT INFORMATION
  Report Type: Spontaneous
  Country: JP (occurrence: JP)
  Receive Date: 20200424
  Receipt Date: 20200424
  Transmission Date: 20200714
  Serious: Yes (Other)
  Sender: FDA-Public Use
  Company Number: JP-PFIZER INC-2020161013

PATIENT
  Age: 91 Year

DRUGS (1)
  1. ANAEMETRO 500MG [Suspect]
     Active Substance: METRONIDAZOLE
     Dosage: UNK

REACTIONS (2)
  - Loss of consciousness [Recovered/Resolved]
  - Clonic convulsion [Recovered/Resolved]
